FAERS Safety Report 8833090 (Version 7)
Quarter: 2016Q2

REPORT INFORMATION
  Report Type: Report from Study
  Country: US (occurrence: US)
  Receive Date: 20121010
  Receipt Date: 20160407
  Transmission Date: 20160815
  Serious: Yes (Life-Threatening, Hospitalization, Other)
  Sender: FDA-Public Use
  Company Number: US-AMGEN-USASP2012063847

PATIENT
  Age: 74 Year
  Sex: Female

DRUGS (4)
  1. ENBREL [Suspect]
     Active Substance: ETANERCEPT
     Indication: OSTEOARTHRITIS
  2. ESTROGEN [Concomitant]
     Active Substance: ESTRONE\SUS SCROFA OVARY
     Dosage: UNK
  3. ENBREL [Suspect]
     Active Substance: ETANERCEPT
     Indication: RHEUMATOID ARTHRITIS
     Dosage: 50 MG, QWK
     Route: 065
     Dates: start: 2010
  4. PREDNISONE. [Concomitant]
     Active Substance: PREDNISONE
     Indication: JOINT SWELLING
     Dosage: 3 MG, QD

REACTIONS (49)
  - Arthritis [Unknown]
  - Malaise [Unknown]
  - Hospitalisation [Unknown]
  - Cardiac pacemaker insertion [Unknown]
  - Balance disorder [Not Recovered/Not Resolved]
  - Dysstasia [Unknown]
  - Malnutrition [Unknown]
  - Headache [Unknown]
  - Laceration [Unknown]
  - Fall [Unknown]
  - Cardiac operation [Unknown]
  - Decreased appetite [Unknown]
  - Osteoarthritis [Unknown]
  - Mobility decreased [Unknown]
  - Pain in extremity [Unknown]
  - Atrial fibrillation [Unknown]
  - Pain [Not Recovered/Not Resolved]
  - Fatigue [Unknown]
  - Joint warmth [Unknown]
  - Joint swelling [Unknown]
  - Condition aggravated [Unknown]
  - Blindness unilateral [Unknown]
  - Cardiac ablation [Unknown]
  - Living in residential institution [Unknown]
  - Corrective lens user [Unknown]
  - Cardiac disorder [Unknown]
  - Gait disturbance [Unknown]
  - Hypersomnia [Unknown]
  - Urinary tract infection [Unknown]
  - Vascular graft [Unknown]
  - Erythema [Unknown]
  - Knee operation [Unknown]
  - Arthralgia [Unknown]
  - Musculoskeletal stiffness [Unknown]
  - Crying [Unknown]
  - Blood pressure abnormal [Unknown]
  - Weight increased [Unknown]
  - Therapeutic response unexpected [Unknown]
  - Memory impairment [Not Recovered/Not Resolved]
  - Angiopathy [Unknown]
  - General physical health deterioration [Unknown]
  - Pyrexia [Unknown]
  - Pain [Unknown]
  - Vision blurred [Unknown]
  - Neuropathy peripheral [Unknown]
  - Apparent death [Unknown]
  - Hypertension [Unknown]
  - Asthenia [Unknown]
  - Peripheral swelling [Unknown]

NARRATIVE: CASE EVENT DATE: 2012
